FAERS Safety Report 4673643-8 (Version None)
Quarter: 2005Q2

REPORT INFORMATION
  Report Type: 
  Country: None (occurrence: None)
  Receive Date: 20050523
  Receipt Date: 20050429
  Transmission Date: 20051028
  Serious: No
  Sender: FDA-Public Use
  Company Number: MED000136

PATIENT
  Sex: 0

DRUGS (2)
  1. LACTATED RINGER'S [Suspect]
     Dosage: 1000 CC;UNK; INTRAVENOUS
     Route: 042
  2. ZANTAC [Suspect]
     Dosage: 50 MG; UNK; INTRAVENOUS
     Route: 042

REACTIONS (2)
  - ERYTHEMA [None]
  - PRURITUS [None]
